FAERS Safety Report 23778606 (Version 1)
Quarter: 2024Q2

REPORT INFORMATION
  Report Type: Spontaneous
  Country: US (occurrence: US)
  Receive Date: 20240424
  Receipt Date: 20240424
  Transmission Date: 20240716
  Serious: Yes (Hospitalization)
  Sender: FDA-Public Use
  Company Number: US-BAUSCH-BL-2024-006317

PATIENT
  Age: 35 Year
  Sex: Female

DRUGS (13)
  1. BUPROPION [Suspect]
     Active Substance: BUPROPION
     Indication: Major depression
     Dosage: EXTENDED RELEASE (XL)
     Route: 065
  2. BUPROPION [Suspect]
     Active Substance: BUPROPION
     Indication: Post-traumatic stress disorder
  3. BUPROPION [Suspect]
     Active Substance: BUPROPION
     Indication: Generalised anxiety disorder
  4. VENLAFAXINE HYDROCHLORIDE [Suspect]
     Active Substance: VENLAFAXINE HYDROCHLORIDE
     Indication: Major depression
     Dosage: EXTENDED RELEASE (ER)
     Route: 065
  5. VENLAFAXINE HYDROCHLORIDE [Suspect]
     Active Substance: VENLAFAXINE HYDROCHLORIDE
     Indication: Post-traumatic stress disorder
  6. VENLAFAXINE HYDROCHLORIDE [Suspect]
     Active Substance: VENLAFAXINE HYDROCHLORIDE
     Indication: Generalised anxiety disorder
  7. PSILOCYBINE [Suspect]
     Active Substance: PSILOCYBINE
     Indication: Major depression
     Dosage: MICRODOSES 4 TIMES/WEEK
     Route: 065
  8. PSILOCYBINE [Suspect]
     Active Substance: PSILOCYBINE
     Indication: Post-traumatic stress disorder
  9. PSILOCYBINE [Suspect]
     Active Substance: PSILOCYBINE
     Indication: Generalised anxiety disorder
  10. TRAZODONE [Suspect]
     Active Substance: TRAZODONE HYDROCHLORIDE
     Indication: Insomnia
     Dosage: 50 TO 100 MG/NIGHT
     Route: 065
  11. LORAZEPAM [Concomitant]
     Active Substance: LORAZEPAM
     Indication: Major depression
     Route: 065
  12. LORAZEPAM [Concomitant]
     Active Substance: LORAZEPAM
     Indication: Post-traumatic stress disorder
  13. LORAZEPAM [Concomitant]
     Active Substance: LORAZEPAM
     Indication: Generalised anxiety disorder

REACTIONS (1)
  - Serotonin syndrome [Recovered/Resolved]
